FAERS Safety Report 7590593-8 (Version None)
Quarter: 2011Q3

REPORT INFORMATION
  Report Type: 
  Country: None (occurrence: None)
  Receive Date: 20110705
  Receipt Date: 20110629
  Transmission Date: 20111222
  Serious: Yes (Hospitalization)
  Sender: FDA-Public Use
  Company Number: DK-PFIZER INC-2011030701

PATIENT
  Sex: Female

DRUGS (4)
  1. HYDROCORTISONE [Concomitant]
     Dosage: 30 MG, 1X/DAY
     Dates: start: 20050920
  2. SOMATROPIN [Suspect]
     Indication: HYPOPITUITARISM
  3. LEVOTHYROXINE [Concomitant]
     Dosage: 0.1 UG, 1X/DAY
     Dates: start: 19850715
  4. NEXIUM [Concomitant]
     Dosage: 40 MG, 1X/DAY
     Dates: start: 20081001

REACTIONS (2)
  - VOMITING [None]
  - DIARRHOEA [None]
